FAERS Safety Report 4866119-6 (Version None)
Quarter: 2005Q4

REPORT INFORMATION
  Report Type: 
  Country: None (occurrence: None)
  Receive Date: 20051221
  Receipt Date: 20051216
  Transmission Date: 20060501
  Serious: Yes (Hospitalization)
  Sender: FDA-Public Use
  Company Number: NO-2005-026353

PATIENT
  Sex: Female

DRUGS (1)
  1. LEVONORGESTREL [Suspect]
     Dosage: 20 UG/DAY, CONT, INTRA-UTERINE
     Route: 015
     Dates: start: 20051115, end: 20051120

REACTIONS (9)
  - ABDOMINAL PAIN LOWER [None]
  - COUGH [None]
  - ENDOMETRITIS [None]
  - GENITAL HAEMORRHAGE [None]
  - IUCD COMPLICATION [None]
  - POST PROCEDURAL COMPLICATION [None]
  - PYREXIA [None]
  - RHINITIS [None]
  - UPPER RESPIRATORY TRACT INFECTION [None]
